FAERS Safety Report 7137552 (Version 4)
Quarter: 2013Q1

REPORT INFORMATION
  Report Type: Spontaneous
  Country: US (occurrence: US)
  Receive Date: 20091002
  Receipt Date: 20130122
  Transmission Date: 20140127
  Serious: Yes (Other)
  Sender: FDA-Public Use
  Company Number: US-ASTRAZENECA-2008UW21221

PATIENT
  Age: 84 Year
  Sex: Female
  Weight: 77.1 kg

DRUGS (4)
  1. ARIMIDEX [Suspect]
     Indication: BREAST CANCER
     Route: 048
     Dates: start: 200805
  2. ARIMIDEX [Suspect]
     Indication: BREAST CANCER
     Dosage: GENERIC
     Route: 048
  3. LISINOPRIL [Concomitant]
  4. LIPITOR [Concomitant]

REACTIONS (6)
  - Metastases to eye [Unknown]
  - Hip fracture [Unknown]
  - Dizziness [Unknown]
  - Malaise [Unknown]
  - Malaise [Unknown]
  - Gait disturbance [Unknown]
